FAERS Safety Report 9218111 (Version 1)
Quarter: 2013Q2

REPORT INFORMATION
  Report Type: Spontaneous
  Country: DE (occurrence: DE)
  Receive Date: 20130408
  Receipt Date: 20130408
  Transmission Date: 20140414
  Serious: Yes (Death, Congenital Anomaly)
  Sender: FDA-Public Use
  Company Number: DE-GLAXOSMITHKLINE-D0079321B

PATIENT
  Sex: 0
  Weight: .3 kg

DRUGS (9)
  1. LAMOTRIGINE [Suspect]
     Indication: EPILEPSY
     Route: 048
     Dates: start: 20080922, end: 20090206
  2. ERGENYL CHRONO [Suspect]
     Indication: EPILEPSY
     Dosage: 3000MG PER DAY
     Route: 048
     Dates: start: 20080922, end: 20081231
  3. KEPPRA [Suspect]
     Indication: EPILEPSY
     Dosage: 4000MG PER DAY
     Route: 048
     Dates: start: 20080922, end: 20090213
  4. PHENYTOIN [Suspect]
     Indication: EPILEPSY
     Dosage: 300MG PER DAY
     Route: 048
     Dates: start: 20080922, end: 20090213
  5. FRISIUM [Suspect]
     Indication: EPILEPSY
     Dosage: 20MG PER DAY
     Route: 048
     Dates: start: 20080922, end: 20090213
  6. LUMINAL [Suspect]
     Indication: EPILEPSY
     Dosage: 50MG PER DAY
     Route: 048
     Dates: start: 20080922, end: 20090213
  7. TAVOR [Suspect]
     Indication: SLEEP DISORDER
     Route: 048
  8. VIMPAT [Concomitant]
     Indication: EPILEPSY
     Route: 048
     Dates: end: 20090204
  9. L-THYROXIN [Concomitant]
     Indication: HYPOTHYROIDISM
     Route: 048

REACTIONS (7)
  - Congenital anomaly [Fatal]
  - Spina bifida [Not Recovered/Not Resolved]
  - Cleft lip and palate [Not Recovered/Not Resolved]
  - Limb malformation [Not Recovered/Not Resolved]
  - Microcephaly [Not Recovered/Not Resolved]
  - Foetal growth restriction [Not Recovered/Not Resolved]
  - Foetal exposure during pregnancy [Unknown]
